FAERS Safety Report 13740933 (Version 1)
Quarter: 2017Q3

REPORT INFORMATION
  Report Type: Spontaneous
  Country: US (occurrence: US)
  Receive Date: 20170711
  Receipt Date: 20170711
  Transmission Date: 20171127
  Serious: Yes (Other)
  Sender: FDA-Public Use
  Company Number: US-WEST-WARD PHARMACEUTICALS CORP.-US-H14001-17-02288

PATIENT
  Sex: Female

DRUGS (8)
  1. PHENOBARBITAL. [Suspect]
     Active Substance: PHENOBARBITAL
     Indication: GENERALISED TONIC-CLONIC SEIZURE
     Route: 065
  2. MYSOLINE [Suspect]
     Active Substance: PRIMIDONE
     Indication: GENERALISED TONIC-CLONIC SEIZURE
     Route: 065
  3. MYSOLINE [Suspect]
     Active Substance: PRIMIDONE
     Indication: PETIT MAL EPILEPSY
  4. DILANTIN [Suspect]
     Active Substance: PHENYTOIN
     Indication: PETIT MAL EPILEPSY
  5. PHENOBARBITAL. [Suspect]
     Active Substance: PHENOBARBITAL
     Indication: PETIT MAL EPILEPSY
  6. DIAZEPAM. [Suspect]
     Active Substance: DIAZEPAM
     Indication: GENERALISED TONIC-CLONIC SEIZURE
     Route: 065
  7. DILANTIN [Suspect]
     Active Substance: PHENYTOIN
     Indication: GENERALISED TONIC-CLONIC SEIZURE
     Route: 065
  8. DIAZEPAM. [Suspect]
     Active Substance: DIAZEPAM
     Indication: PETIT MAL EPILEPSY

REACTIONS (3)
  - Major depression [Recovering/Resolving]
  - Cognitive disorder [Recovering/Resolving]
  - Agitation [Recovering/Resolving]
